APPROVED DRUG PRODUCT: BENDAMUSTINE HYDROCHLORIDE
Active Ingredient: BENDAMUSTINE HYDROCHLORIDE
Strength: 100MG/4ML (25MG/ML)
Dosage Form/Route: SOLUTION;INTRAVENOUS
Application: N216078 | Product #001 | TE Code: AP
Applicant: BAXTER HEALTHCARE CORP
Approved: Dec 15, 2022 | RLD: Yes | RS: Yes | Type: RX